FAERS Safety Report 16939629 (Version 1)
Quarter: 2019Q4

REPORT INFORMATION
  Report Type: Spontaneous
  Country: GB (occurrence: GB)
  Receive Date: 20191021
  Receipt Date: 20191021
  Transmission Date: 20200122
  Serious: Yes (Hospitalization)
  Sender: FDA-Public Use
  Company Number: GB-TEVA-679675ACC

PATIENT
  Age: 35 Year
  Sex: Female
  Weight: 74.83 kg

DRUGS (2)
  1. PARACETAMOL [Concomitant]
     Active Substance: ACETAMINOPHEN
  2. AMOXICILLIN. [Suspect]
     Active Substance: AMOXICILLIN
     Indication: BRONCHITIS BACTERIAL
     Dosage: 3 DOSAGE FORMS DAILY;
     Route: 048
     Dates: start: 20160323, end: 20160329

REACTIONS (2)
  - Maternal exposure during pregnancy [Unknown]
  - Cholestasis of pregnancy [Recovered/Resolved]

NARRATIVE: CASE EVENT DATE: 20160326
